FAERS Safety Report 13859783 (Version 1)
Quarter: 2017Q3

REPORT INFORMATION
  Report Type: Spontaneous
  Country: BR (occurrence: BR)
  Receive Date: 20170811
  Receipt Date: 20170811
  Transmission Date: 20171127
  Serious: Yes (Hospitalization, Other)
  Sender: FDA-Public Use
  Company Number: BR-PFIZER INC-2017219134

PATIENT
  Age: 30 Year
  Sex: Female
  Weight: 57 kg

DRUGS (5)
  1. GENUXAL [Suspect]
     Active Substance: CYCLOPHOSPHAMIDE
     Indication: BREAST CANCER
     Dosage: 958.2 MG, UNK
     Route: 042
     Dates: start: 20170117, end: 20170330
  2. NAUSEDRON [Concomitant]
     Active Substance: ONDANSETRON HYDROCHLORIDE
     Dosage: UNK, AFTER QT
  3. OMEPRAZOLE. [Concomitant]
     Active Substance: OMEPRAZOLE
     Dosage: UNK
  4. ADRIBLASTINA [Suspect]
     Active Substance: DOXORUBICIN HYDROCHLORIDE
     Indication: BREAST CANCER
     Dosage: 95.82 MG, UNK
     Route: 042
     Dates: start: 20170117, end: 20170330
  5. DEXAMETHASONE. [Concomitant]
     Active Substance: DEXAMETHASONE
     Dosage: UNK, AFTER QT

REACTIONS (2)
  - Febrile neutropenia [Recovered/Resolved]
  - Urinary tract infection fungal [Recovered/Resolved]

NARRATIVE: CASE EVENT DATE: 20170201
